FAERS Safety Report 25510009 (Version 2)
Quarter: 2025Q3

REPORT INFORMATION
  Report Type: Spontaneous
  Country: EU (occurrence: EU)
  Receive Date: 20250703
  Receipt Date: 20250918
  Transmission Date: 20251020
  Serious: Yes (Other)
  Sender: MERCK SHARP & DOHME LLC
  Company Number: None

PATIENT
  Age: 76 Year
  Sex: Female
  Weight: 62.6 kg

DRUGS (5)
  1. KEYTRUDA [Suspect]
     Active Substance: PEMBROLIZUMAB
     Indication: Malignant melanoma
     Dosage: 200MG 21/21 DAYS
     Route: 042
     Dates: start: 20241017
  2. Atorvastatin + Ezetimibe 40 + 10 mg [Concomitant]
  3. ESCITALOPRAM [Concomitant]
     Active Substance: ESCITALOPRAM OXALATE
  4. Clorazepate 5mg [Concomitant]
     Route: 048
  5. Lorazepam 2.5 mg [Concomitant]

REACTIONS (1)
  - Autoimmune dermatitis [Not Recovered/Not Resolved]

NARRATIVE: CASE EVENT DATE: 20250515
